FAERS Safety Report 6087742-X (Version None)
Quarter: 2009Q1

REPORT INFORMATION
  Report Type: 
  Country: None (occurrence: None)
  Receive Date: 20090219
  Receipt Date: 20081229
  Transmission Date: 20090719
  Serious: No
  Sender: FDA-Public Use
  Company Number: WAES  0812USA05093

PATIENT
  Sex: Female

DRUGS (1)
  1. JANUVIA [Suspect]
     Indication: DIABETES MELLITUS
     Dosage: 100 MG/DAILY/PO
     Route: 048
     Dates: start: 20080829, end: 20081229

REACTIONS (4)
  - ALOPECIA [None]
  - COUGH [None]
  - HEADACHE [None]
  - UPPER RESPIRATORY TRACT INFECTION [None]
